FAERS Safety Report 4788105-7 (Version None)
Quarter: 2005Q4

REPORT INFORMATION
  Report Type: 
  Country: None (occurrence: None)
  Receive Date: 20051003
  Receipt Date: 20050922
  Transmission Date: 20060501
  Serious: Yes (Hospitalization)
  Sender: FDA-Public Use
  Company Number: 2005-09-1406

PATIENT
  Age: 50 Year
  Sex: Male

DRUGS (4)
  1. PEG-INTRON [Suspect]
     Indication: HEPATITIS C
     Dosage: QWK, SUBCUTANEOUS
     Route: 058
     Dates: start: 20050121, end: 20050728
  2. RIBAVIRIN [Suspect]
     Indication: HEPATITIS C
     Dosage: ORAL
     Route: 048
     Dates: start: 20050121, end: 20050708
  3. DIABEX [Concomitant]
  4. COVERSYL [Concomitant]

REACTIONS (1)
  - CENTRAL PONTINE MYELINOLYSIS [None]
